FAERS Safety Report 9352692 (Version 1)
Quarter: 2013Q2

REPORT INFORMATION
  Report Type: Report from Study
  Country: BR (occurrence: BR)
  Receive Date: 20130618
  Receipt Date: 20130618
  Transmission Date: 20140414
  Serious: Yes (Hospitalization)
  Sender: FDA-Public Use
  Company Number: BR-ROCHE-1237924

PATIENT
  Age: 65 Year
  Sex: Female

DRUGS (1)
  1. ACTEMRA [Suspect]
     Indication: PRODUCT USED FOR UNKNOWN INDICATION
     Route: 065

REACTIONS (4)
  - Cardiac disorder [Unknown]
  - Dyspnoea [Unknown]
  - Lung disorder [Recovering/Resolving]
  - Diabetes mellitus [Unknown]
